FAERS Safety Report 25239792 (Version 1)
Quarter: 2025Q2

REPORT INFORMATION
  Report Type: Spontaneous
  Country: US (occurrence: US)
  Receive Date: 20250425
  Receipt Date: 20250425
  Transmission Date: 20250716
  Serious: Yes (Hospitalization)
  Sender: MYLAN
  Company Number: US-MYLANLABS-2025M1035711

PATIENT
  Age: 54 Year
  Sex: Female

DRUGS (12)
  1. PANTOPRAZOLE [Suspect]
     Active Substance: PANTOPRAZOLE
     Indication: Necrotising oesophagitis
     Dosage: 40 MILLIGRAM, BID
  2. PANTOPRAZOLE [Suspect]
     Active Substance: PANTOPRAZOLE
     Dosage: 40 MILLIGRAM, BID
     Route: 042
  3. PANTOPRAZOLE [Suspect]
     Active Substance: PANTOPRAZOLE
     Dosage: 40 MILLIGRAM, BID
     Route: 042
  4. PANTOPRAZOLE [Suspect]
     Active Substance: PANTOPRAZOLE
     Dosage: 40 MILLIGRAM, BID
  5. SUCRALFATE [Suspect]
     Active Substance: SUCRALFATE
     Indication: Necrotising oesophagitis
  6. SUCRALFATE [Suspect]
     Active Substance: SUCRALFATE
     Route: 065
  7. SUCRALFATE [Suspect]
     Active Substance: SUCRALFATE
     Route: 065
  8. SUCRALFATE [Suspect]
     Active Substance: SUCRALFATE
  9. INSULIN NOS [Concomitant]
     Active Substance: INSULIN NOS
     Indication: Diabetic ketoacidosis
  10. INSULIN NOS [Concomitant]
     Active Substance: INSULIN NOS
     Route: 065
  11. INSULIN NOS [Concomitant]
     Active Substance: INSULIN NOS
     Route: 065
  12. INSULIN NOS [Concomitant]
     Active Substance: INSULIN NOS

REACTIONS (2)
  - Drug ineffective for unapproved indication [Unknown]
  - Off label use [Unknown]
